FAERS Safety Report 5026166-0 (Version None)
Quarter: 2006Q2

REPORT INFORMATION
  Report Type: 
  Country: None (occurrence: None)
  Receive Date: 20060608
  Receipt Date: 20060531
  Transmission Date: 20061013
  Serious: No
  Sender: FDA-Public Use
  Company Number: US200606000212

PATIENT
  Age: 26 Year
  Sex: Female

DRUGS (1)
  1. ZYPREXA [Suspect]
     Indication: THINKING ABNORMAL
     Dosage: 20 MG
     Dates: start: 20030101

REACTIONS (6)
  - ANAEMIA [None]
  - FATIGUE [None]
  - MENORRHAGIA [None]
  - NERVOUSNESS [None]
  - SENSATION OF HEAVINESS [None]
  - SKIN DISCOLOURATION [None]
